FAERS Safety Report 4843306-4 (Version None)
Quarter: 2005Q4

REPORT INFORMATION
  Report Type: 
  Country: None (occurrence: None)
  Receive Date: 20051201
  Receipt Date: 20050929
  Transmission Date: 20060501
  Serious: Yes (Hospitalization, Disabling)
  Sender: FDA-Public Use
  Company Number: US-MERCK-0510USA00415

PATIENT
  Age: 58 Year
  Sex: Female
  Weight: 73 kg

DRUGS (1)
  1. VIOXX [Suspect]
     Indication: FIBROMYALGIA
     Route: 048
     Dates: start: 20010301, end: 20040901

REACTIONS (1)
  - CEREBROVASCULAR ACCIDENT [None]
